FAERS Safety Report 12430454 (Version 1)
Quarter: 2016Q2

REPORT INFORMATION
  Report Type: Spontaneous
  Country: US (occurrence: US)
  Receive Date: 20160602
  Receipt Date: 20160602
  Transmission Date: 20160815
  Serious: Yes (Hospitalization)
  Sender: FDA-Public Use
  Company Number: US-DSJP-DSU-2015-118409

PATIENT
  Sex: Female
  Weight: 62 kg

DRUGS (1)
  1. BENICAR [Suspect]
     Active Substance: OLMESARTAN MEDOXOMIL
     Indication: HYPERTENSION
     Dosage: 20 MG, QD
     Route: 048
     Dates: start: 2007, end: 20140627

REACTIONS (6)
  - Gastrooesophageal reflux disease [Unknown]
  - Malabsorption [Unknown]
  - Dyspnoea [Unknown]
  - Gastric ulcer [Unknown]
  - Chest pain [Unknown]
  - Gastrointestinal injury [Unknown]
